FAERS Safety Report 21924556 (Version 1)
Quarter: 2023Q1

REPORT INFORMATION
  Report Type: Spontaneous
  Country: TR (occurrence: TR)
  Receive Date: 20230130
  Receipt Date: 20230130
  Transmission Date: 20230418
  Serious: Yes (Death, Hospitalization, Other)
  Sender: FDA-Public Use
  Company Number: TR-STERISCIENCE B.V.-2023-ST-000355

PATIENT
  Age: 53 Year
  Sex: Female

DRUGS (10)
  1. MEROPENEM [Suspect]
     Active Substance: MEROPENEM
     Indication: Necrotising fasciitis
     Dosage: 3000 MILLIGRAM, 3 X 1000 MG
     Route: 065
  2. LINEZOLID [Suspect]
     Active Substance: LINEZOLID
     Indication: Necrotising fasciitis
     Dosage: 1200 MILLIGRAM, 2 X 600 MG
     Route: 065
  3. DAPTOMYCIN [Suspect]
     Active Substance: DAPTOMYCIN
     Indication: Necrotising fasciitis
     Dosage: 500 MILLIGRAM, 1 X 500 MG
     Route: 065
  4. METRONIDAZOLE [Suspect]
     Active Substance: METRONIDAZOLE
     Indication: Necrotising fasciitis
     Dosage: 2000 MILLIGRAM, 4 X 500MG
     Route: 065
  5. PREDNISOLONE [Concomitant]
     Active Substance: PREDNISOLONE
     Indication: Pemphigus
     Dosage: 10 MILLIGRAM, QD
     Route: 048
  6. CEFAZOLIN [Concomitant]
     Active Substance: CEFAZOLIN
     Indication: Antibiotic prophylaxis
     Dosage: UNK
     Route: 065
  7. FUSIDATE SODIUM [Concomitant]
     Active Substance: FUSIDATE SODIUM
     Indication: Antibiotic therapy
     Dosage: 1500 MILLIGRAM, 3 X 500 MG
     Route: 048
  8. INSULIN NOS [Concomitant]
     Active Substance: INSULIN NOS
     Indication: Type 2 diabetes mellitus
     Dosage: UNK
     Route: 065
  9. SALINE [Concomitant]
     Active Substance: SODIUM CHLORIDE
     Indication: Wound treatment
     Dosage: THE WOUND WAS IRRIGATED WITH 30 LITERS OF SODIUM-CHLORIDE
     Route: 065
  10. TEICOPLANIN [Concomitant]
     Active Substance: TEICOPLANIN
     Indication: Wound treatment
     Dosage: MIXED CEMENT SPACER WAS PLACED INTO FEMUR INTRAMEDULLARY AND PARAVERTEBRAL REGIONS
     Route: 065

REACTIONS (1)
  - Drug ineffective [Fatal]
